FAERS Safety Report 10716726 (Version 1)
Quarter: 2015Q1

REPORT INFORMATION
  Report Type: Report from Study
  Country: DE (occurrence: DE)
  Receive Date: 20150116
  Receipt Date: 20150116
  Transmission Date: 20150721
  Serious: Yes (Death, Other)
  Sender: FDA-Public Use
  Company Number: DE-SA-2015SA004253

PATIENT
  Age: 71 Year
  Sex: Female
  Weight: 61 kg

DRUGS (8)
  1. 5-FU [Concomitant]
     Active Substance: FLUOROURACIL
  2. IRINOTECAN [Concomitant]
     Active Substance: IRINOTECAN
  3. ZALTRAP [Suspect]
     Active Substance: ZIV-AFLIBERCEPT
     Indication: COLORECTAL CANCER
     Route: 042
  4. 5-FU [Concomitant]
     Active Substance: FLUOROURACIL
     Dates: start: 20141210, end: 20141210
  5. FOLINIC ACID [Concomitant]
     Active Substance: LEUCOVORIN
     Dates: start: 20141210, end: 20141210
  6. ZALTRAP [Suspect]
     Active Substance: ZIV-AFLIBERCEPT
     Indication: COLORECTAL CANCER
     Route: 042
     Dates: start: 20141210, end: 20141210
  7. FOLINIC ACID [Concomitant]
     Active Substance: LEUCOVORIN
  8. IRINOTECAN [Concomitant]
     Active Substance: IRINOTECAN
     Dates: start: 20141210, end: 20141210

REACTIONS (6)
  - Cardiac arrest [Unknown]
  - Brain injury [Unknown]
  - Stomatitis [Unknown]
  - Death [Fatal]
  - Alopecia [Unknown]
  - Aspiration [Unknown]

NARRATIVE: CASE EVENT DATE: 20141215
